FAERS Safety Report 12831056 (Version 1)
Quarter: 2016Q4

REPORT INFORMATION
  Report Type: Spontaneous
  Country: GB (occurrence: GB)
  Receive Date: 20161007
  Receipt Date: 20161007
  Transmission Date: 20170207
  Serious: Yes (Other)
  Sender: FDA-Public Use
  Company Number: GB-ASTRAZENECA-2016SF04293

PATIENT
  Age: 49 Year
  Sex: Female
  Weight: 90 kg

DRUGS (12)
  1. LINAGLIPTIN [Concomitant]
     Active Substance: LINAGLIPTIN
  2. ATORVASTATIN [Concomitant]
     Active Substance: ATORVASTATIN
  3. MEBEVERINE [Concomitant]
     Active Substance: MEBEVERINE
  4. DAPAGLIFLOZIN [Suspect]
     Active Substance: DAPAGLIFLOZIN
     Indication: DIABETES MELLITUS
     Route: 048
     Dates: start: 20130903, end: 20160825
  5. AMLODIPINE [Concomitant]
     Active Substance: AMLODIPINE BESYLATE
  6. CLENIL MODULITE [Concomitant]
     Active Substance: BECLOMETHASONE DIPROPIONATE
  7. GLYCERYL TRINITRATE [Concomitant]
     Active Substance: NITROGLYCERIN
  8. GLICLAZIDE [Concomitant]
     Active Substance: GLICLAZIDE
  9. LANSOPRAZOLE. [Concomitant]
     Active Substance: LANSOPRAZOLE
  10. SALBUTAMOL [Concomitant]
     Active Substance: ALBUTEROL
  11. DOUBLEBASE [Concomitant]
     Active Substance: ISOPROPYL MYRISTATE\PARAFFIN
  12. METFORMIN [Concomitant]
     Active Substance: METFORMIN HYDROCHLORIDE

REACTIONS (4)
  - Palpitations [Recovered/Resolved]
  - Dizziness [Recovered/Resolved]
  - Lethargy [Recovered/Resolved]
  - Hyperhidrosis [Recovered/Resolved]

NARRATIVE: CASE EVENT DATE: 20160823
